FAERS Safety Report 17734196 (Version 1)
Quarter: 2020Q2

REPORT INFORMATION
  Report Type: Spontaneous
  Country: FR (occurrence: FR)
  Receive Date: 20200501
  Receipt Date: 20200501
  Transmission Date: 20200714
  Serious: Yes (Disabling)
  Sender: FDA-Public Use
  Company Number: FR-CELGENEUS-FRA-20200408331

PATIENT
  Age: 89 Year
  Sex: Female
  Weight: 39 kg

DRUGS (2)
  1. REVLIMID [Suspect]
     Active Substance: LENALIDOMIDE
     Indication: LYMPHOMA
     Dosage: 2 SEMAINE/MOIS
     Route: 048
     Dates: start: 20190630, end: 20200110
  2. GAZYVARO [Concomitant]
     Active Substance: OBINUTUZUMAB
     Indication: LYMPHOMA
     Route: 042
     Dates: start: 20190702, end: 20200204

REACTIONS (5)
  - Thrombocytopenia [Unknown]
  - Asthenia [Unknown]
  - Deafness [Unknown]
  - Leukopenia [Recovered/Resolved]
  - Pneumonia [Recovered/Resolved]

NARRATIVE: CASE EVENT DATE: 201911
